FAERS Safety Report 9174477 (Version 1)
Quarter: 2013Q1

REPORT INFORMATION
  Report Type: Spontaneous
  Country: US (occurrence: US)
  Receive Date: 20130320
  Receipt Date: 20130320
  Transmission Date: 20140127
  Serious: No
  Sender: FDA-Public Use
  Company Number: US-MYLANLABS-2012S1011709

PATIENT
  Sex: Female

DRUGS (1)
  1. ESTRADIOL TRANSDERMAL SYSTEM, USP [Suspect]
     Indication: HORMONE REPLACEMENT THERAPY
     Dosage: CHANGE QWEEK
     Route: 062
     Dates: start: 2004

REACTIONS (3)
  - Insomnia [Recovered/Resolved]
  - Condition aggravated [Recovered/Resolved]
  - Unevaluable event [Recovered/Resolved]
